FAERS Safety Report 9095774 (Version 1)
Quarter: 2013Q1

REPORT INFORMATION
  Report Type: Spontaneous
  Country: AU (occurrence: AU)
  Receive Date: 20130220
  Receipt Date: 20130220
  Transmission Date: 20140127
  Serious: Yes (Other)
  Sender: FDA-Public Use
  Company Number: AU-ASTRAZENECA-2013SE05647

PATIENT
  Sex: Male

DRUGS (3)
  1. CRESTOR [Suspect]
     Indication: HYPERLIPIDAEMIA
     Route: 048
     Dates: start: 201201
  2. CRESTOR [Suspect]
     Indication: HYPERLIPIDAEMIA
     Route: 048
  3. LIPIDIL [Concomitant]
     Dates: start: 201208

REACTIONS (1)
  - Blood triglycerides increased [Not Recovered/Not Resolved]
